FAERS Safety Report 4426547-X (Version None)
Quarter: 2004Q3

REPORT INFORMATION
  Report Type: 
  Country: None (occurrence: None)
  Receive Date: 20040816
  Receipt Date: 20040806
  Transmission Date: 20050211
  Serious: Yes (Hospitalization)
  Sender: FDA-Public Use
  Company Number: US-JNJFOC-20040802434

PATIENT
  Sex: Female

DRUGS (6)
  1. DURAGESIC [Suspect]
     Route: 062
     Dates: start: 20010401
  2. DURAGESIC [Suspect]
     Route: 062
     Dates: start: 20010401
  3. DURAGESIC [Suspect]
     Route: 062
     Dates: start: 20010401
  4. CLONAZEPAM [Concomitant]
     Dosage: AT NIGHT
     Route: 049
  5. LEXAPRO [Concomitant]
     Route: 049
  6. IRON [Concomitant]
     Route: 049

REACTIONS (2)
  - APPLICATION SITE ERYTHEMA [None]
  - PNEUMONIA [None]
